FAERS Safety Report 9637862 (Version 1)
Quarter: 2013Q4

REPORT INFORMATION
  Report Type: Spontaneous
  Country: CL (occurrence: CL)
  Receive Date: 20131022
  Receipt Date: 20131022
  Transmission Date: 20140711
  Serious: Yes (Other)
  Sender: FDA-Public Use
  Company Number: CL-009507513-1310CHL008240

PATIENT
  Age: 42 Year
  Sex: Female

DRUGS (2)
  1. NUVARING [Suspect]
     Indication: CONTRACEPTION
     Dosage: DELIVERS 0.120 MG/0.015MG, PER DAY
     Route: 067
     Dates: start: 200706
  2. NUVARING [Suspect]
     Dosage: DELIVERS 0.120 MG/0.015MG, PER DAY
     Route: 067
     Dates: start: 20130915, end: 20130927

REACTIONS (3)
  - Cervical conisation [Unknown]
  - Smear cervix abnormal [Unknown]
  - Cervical dysplasia [Unknown]
